FAERS Safety Report 19775350 (Version 3)
Quarter: 2021Q3

REPORT INFORMATION
  Report Type: Spontaneous
  Country: US (occurrence: US)
  Receive Date: 20210902
  Receipt Date: 20210924
  Transmission Date: 20211014
  Serious: Yes (Hospitalization, Other)
  Sender: FDA-Public Use
  Company Number: US-AUROBINDO-AUR-APL-2021-037126

PATIENT
  Age: 62 Year
  Sex: Male

DRUGS (2)
  1. FLECAINIDE [Suspect]
     Active Substance: FLECAINIDE
     Indication: ATRIAL FIBRILLATION
     Dosage: UNK
     Route: 065
  2. METOPROLOL. [Concomitant]
     Active Substance: METOPROLOL
     Indication: ATRIAL FIBRILLATION
     Dosage: UNK
     Route: 065

REACTIONS (7)
  - Toxicity to various agents [Unknown]
  - Defect conduction intraventricular [Recovered/Resolved]
  - Bradycardia [Recovered/Resolved]
  - Hypotension [Recovered/Resolved]
  - Electrocardiogram QT prolonged [Recovered/Resolved]
  - Tachycardia [Recovered/Resolved]
  - Electrocardiogram QRS complex prolonged [Unknown]
